FAERS Safety Report 17422718 (Version 1)
Quarter: 2020Q1

REPORT INFORMATION
  Report Type: Spontaneous
  Country: MY (occurrence: MY)
  Receive Date: 20200215
  Receipt Date: 20200215
  Transmission Date: 20200409
  Serious: Yes (Other)
  Sender: FDA-Public Use
  Company Number: MY-ACCORD-172453

PATIENT
  Age: 58 Year
  Sex: Male

DRUGS (12)
  1. XELODA [Suspect]
     Active Substance: CAPECITABINE
     Indication: COLON CANCER STAGE IV
     Dosage: CYCLE 1
     Dates: start: 20191205
  2. XELODA [Suspect]
     Active Substance: CAPECITABINE
     Indication: COLON CANCER STAGE IV
     Dosage: CYCLE 2
     Dates: start: 20191223
  3. XELODA [Suspect]
     Active Substance: CAPECITABINE
     Indication: COLON CANCER STAGE IV
     Dosage: CYCLE 3
     Dates: start: 20200119
  4. AVASTIN [Suspect]
     Active Substance: BEVACIZUMAB
     Indication: COLON CANCER STAGE IV
     Dosage: CYCLE 4
     Dates: start: 20200209
  5. OXAPLIN [Suspect]
     Active Substance: OXALIPLATIN
     Indication: COLON CANCER STAGE IV
     Dosage: STRENGTH: 100 MG CYCLE:2
     Dates: start: 20191223
  6. OXAPLIN [Suspect]
     Active Substance: OXALIPLATIN
     Indication: COLON CANCER STAGE IV
     Dosage: STRENGTH: 100 MG CYCLE: 4
     Dates: start: 20200209
  7. AVASTIN [Suspect]
     Active Substance: BEVACIZUMAB
     Indication: COLON CANCER STAGE IV
     Dosage: CYCLE 1
     Dates: start: 20191205
  8. XELODA [Suspect]
     Active Substance: CAPECITABINE
     Indication: COLON CANCER STAGE IV
     Dosage: CYCLE 4
     Dates: start: 20200209
  9. OXAPLIN [Suspect]
     Active Substance: OXALIPLATIN
     Indication: COLON CANCER STAGE IV
     Dosage: STRENGTH: 100 MG CYCLE: 1
     Dates: start: 20191205
  10. AVASTIN [Suspect]
     Active Substance: BEVACIZUMAB
     Indication: COLON CANCER STAGE IV
     Dosage: CYCLE 2
     Dates: start: 20191223
  11. OXAPLIN [Suspect]
     Active Substance: OXALIPLATIN
     Indication: COLON CANCER STAGE IV
     Dosage: STRENGTH: 100 MG CYCLE: 3
     Dates: start: 20200119
  12. AVASTIN [Suspect]
     Active Substance: BEVACIZUMAB
     Indication: COLON CANCER STAGE IV
     Dosage: CYCLE 3
     Dates: start: 20200119

REACTIONS (4)
  - Somnolence [Unknown]
  - Circulatory collapse [Unknown]
  - Blindness cortical [Unknown]
  - Anaphylactic shock [Unknown]

NARRATIVE: CASE EVENT DATE: 20200209
